FAERS Safety Report 21096937 (Version 1)
Quarter: 2022Q3

REPORT INFORMATION
  Report Type: Report from Study
  Country: US (occurrence: US)
  Receive Date: 20220718
  Receipt Date: 20220718
  Transmission Date: 20221026
  Serious: Yes (Other)
  Sender: FDA-Public Use
  Company Number: US-ABBVIE-22K-163-4467542-00

PATIENT
  Sex: Male

DRUGS (1)
  1. VENCLEXTA [Suspect]
     Active Substance: VENETOCLAX
     Indication: Chronic lymphocytic leukaemia
     Route: 048
     Dates: start: 202109

REACTIONS (4)
  - Neoplasm [Unknown]
  - White blood cell count decreased [Unknown]
  - Rash erythematous [Unknown]
  - Scar [Recovering/Resolving]

NARRATIVE: CASE EVENT DATE: 20220101
